FAERS Safety Report 5861872-7 (Version None)
Quarter: 2008Q3

REPORT INFORMATION
  Report Type: 
  Country: None (occurrence: None)
  Receive Date: 20080827
  Receipt Date: 20080723
  Transmission Date: 20090109
  Serious: No
  Sender: FDA-Public Use
  Company Number: US-ABBOTT-08P-163-0464123-00

PATIENT
  Sex: Female

DRUGS (1)
  1. NIASPAN [Suspect]
     Indication: DRUG USE FOR UNKNOWN INDICATION
     Dates: start: 20080716

REACTIONS (5)
  - EYE IRRITATION [None]
  - HYPERSENSITIVITY [None]
  - SENSORY DISTURBANCE [None]
  - SKIN TIGHTNESS [None]
  - SWELLING FACE [None]
